FAERS Safety Report 7041890-6 (Version None)
Quarter: 2010Q4

REPORT INFORMATION
  Report Type: 
  Country: None (occurrence: None)
  Receive Date: 20101013
  Receipt Date: 20100218
  Transmission Date: 20110411
  Serious: Yes (Hospitalization)
  Sender: FDA-Public Use
  Company Number: US-ASTRAZENECA-2010SE07454

PATIENT
  Age: 27538 Day
  Sex: Female

DRUGS (1)
  1. SYMBICORT [Suspect]
     Indication: CHRONIC OBSTRUCTIVE PULMONARY DISEASE
     Dosage: 160/4.5 UG TWO PUFFS, TOTAL DAILY DOSE: 640 UG
     Route: 055
     Dates: start: 20090101

REACTIONS (2)
  - ATRIAL FIBRILLATION [None]
  - DIZZINESS [None]
